FAERS Safety Report 7275009-3 (Version None)
Quarter: 2011Q1

REPORT INFORMATION
  Report Type: 
  Country: None (occurrence: None)
  Receive Date: 20110204
  Receipt Date: 20101231
  Transmission Date: 20110831
  Serious: Yes (Death)
  Sender: FDA-Public Use
  Company Number: US-PFIZER INC-2011023965

PATIENT
  Age: 17 Year
  Sex: Male

DRUGS (6)
  1. GABAPENTIN [Suspect]
  2. VENLAFAXINE HCL [Suspect]
  3. LOVASTATIN [Suspect]
  4. METHADONE [Suspect]
  5. PROPRANOLOL [Suspect]
  6. FEXOFENADINE [Suspect]

REACTIONS (3)
  - RESPIRATORY ARREST [None]
  - COMPLETED SUICIDE [None]
  - CARDIAC ARREST [None]
